FAERS Safety Report 10266614 (Version 2)
Quarter: 2014Q3

REPORT INFORMATION
  Report Type: Report from Study
  Country: BR (occurrence: BR)
  Receive Date: 20140629
  Receipt Date: 20140729
  Transmission Date: 20150326
  Serious: Yes (Other)
  Sender: FDA-Public Use
  Company Number: PHHY2014BR079550

PATIENT
  Sex: Male
  Weight: 92 kg

DRUGS (2)
  1. EXODUS [Concomitant]
     Active Substance: ESCITALOPRAM OXALATE
     Indication: DEPRESSION
     Dosage: 1 DF, DAY (ONE TABLET OF 20 MG PER DAY)
     Route: 048
  2. RITALIN LA [Suspect]
     Active Substance: METHYLPHENIDATE HYDROCHLORIDE
     Indication: ATTENTION DEFICIT/HYPERACTIVITY DISORDER
     Dosage: 1 DF, QD (ONE CAPSULE A DAY)
     Dates: start: 201405, end: 20140615

REACTIONS (3)
  - Unresponsive to stimuli [Recovering/Resolving]
  - Anxiety [Recovering/Resolving]
  - Suicidal ideation [Recovering/Resolving]
